FAERS Safety Report 4857982-3 (Version None)
Quarter: 2005Q4

REPORT INFORMATION
  Report Type: 
  Country: None (occurrence: None)
  Receive Date: 20051219
  Receipt Date: 20050422
  Transmission Date: 20060501
  Serious: No
  Sender: FDA-Public Use
  Company Number: US-GLAXOSMITHKLINE-A0555782A

PATIENT
  Sex: Female

DRUGS (3)
  1. NICODERM CQ [Suspect]
     Route: 062
     Dates: start: 20030101, end: 20030101
  2. NICODERM CQ [Suspect]
     Route: 062
     Dates: start: 20030101, end: 20030101
  3. NICODERM CQ [Suspect]
     Route: 062
     Dates: start: 20030101, end: 20030101

REACTIONS (3)
  - APPLICATION SITE DERMATITIS [None]
  - APPLICATION SITE PRURITUS [None]
  - ARTERIAL STENOSIS LIMB [None]
